FAERS Safety Report 5386549-6 (Version None)
Quarter: 2007Q3

REPORT INFORMATION
  Report Type: 
  Country: None (occurrence: None)
  Receive Date: 20070713
  Receipt Date: 20070710
  Transmission Date: 20080115
  Serious: Yes (Hospitalization)
  Sender: FDA-Public Use
  Company Number: JP-ASTRAZENECA-2007AP00713

PATIENT
  Age: 92 Year
  Sex: Male
  Weight: 42 kg

DRUGS (8)
  1. MEROPENEM [Suspect]
     Indication: PNEUMONIA
     Route: 041
     Dates: start: 20061206, end: 20061211
  2. UNASYN [Suspect]
     Indication: PNEUMONIA
     Route: 041
     Dates: start: 20061204, end: 20061207
  3. ERYTHROCIN [Suspect]
     Indication: PNEUMONIA
     Route: 041
     Dates: start: 20061204, end: 20061206
  4. BERIZYM [Concomitant]
     Indication: ABDOMINAL DISCOMFORT
     Route: 048
  5. PANTOSIN [Concomitant]
     Indication: HYPERLIPIDAEMIA
     Route: 048
  6. EPADEL-S [Concomitant]
     Indication: HYPERLIPIDAEMIA
     Route: 048
  7. HEAVY K MAG-G [Concomitant]
     Indication: CONSTIPATION
     Route: 048
  8. PAEDIATRIC BUFFERIN [Concomitant]
     Dosage: TAKEN IRREGULARLY
     Dates: start: 19961228

REACTIONS (1)
  - HEPATIC FUNCTION ABNORMAL [None]
